FAERS Safety Report 12192320 (Version 2)
Quarter: 2016Q2

REPORT INFORMATION
  Report Type: Report from Study
  Country: US (occurrence: US)
  Receive Date: 20160318
  Receipt Date: 20160415
  Transmission Date: 20160815
  Serious: Yes (Other)
  Sender: FDA-Public Use
  Company Number: US-BAYER-2016-004698

PATIENT
  Age: 63 Year
  Sex: Male

DRUGS (2)
  1. NEXAVAR [Suspect]
     Active Substance: SORAFENIB
     Indication: HEPATOCELLULAR CARCINOMA
     Dosage: 200 MG, BID
     Route: 048
     Dates: start: 20160104, end: 201602
  2. NEXAVAR [Suspect]
     Active Substance: SORAFENIB
     Indication: HEPATOCELLULAR CARCINOMA
     Dosage: 200 MG, BID
     Route: 048
     Dates: start: 2016, end: 201603

REACTIONS (17)
  - Dyspepsia [None]
  - Asthenia [None]
  - Diarrhoea [None]
  - Tumour pain [None]
  - Asthma [None]
  - Fatigue [None]
  - Vomiting [None]
  - Abdominal pain upper [None]
  - Underdose [None]
  - Headache [None]
  - Dizziness [None]
  - Nausea [None]
  - Bedridden [None]
  - Incision site haemorrhage [None]
  - Hypotension [None]
  - Hyperhidrosis [None]
  - Lung disorder [None]

NARRATIVE: CASE EVENT DATE: 2016
